FAERS Safety Report 8803663 (Version 1)
Quarter: 2012Q4

REPORT INFORMATION
  Report Type: 
  Country: GB (occurrence: GB)
  Receive Date: 20120924
  Receipt Date: 20120924
  Transmission Date: 20130627
  Serious: Yes (Hospitalization, Other)
  Sender: FDA-Public Use
  Company Number: GB-AMGEN-GBRSP2012059646

PATIENT
  Age: 61 Year
  Sex: Female
  Weight: 78 kg

DRUGS (3)
  1. ENBREL [Suspect]
     Indication: RHEUMATOID ARTHRITIS
     Dosage: 50 mg, qwk
     Route: 058
     Dates: start: 20111205, end: 20120404
  2. METHOTREXATE SODIUM [Suspect]
     Indication: RHEUMATOID ARTHRITIS
     Dosage: 7.5 mg, UNK
     Route: 048
     Dates: start: 20110808, end: 20120404
  3. AMITRIPTYLINE [Concomitant]
     Dosage: 100 mg, 1x/day

REACTIONS (5)
  - Liver function test abnormal [Recovering/Resolving]
  - Blood albumin decreased [Recovering/Resolving]
  - International normalised ratio increased [Recovering/Resolving]
  - Hepatic failure [Recovering/Resolving]
  - Autoimmune hepatitis [Recovering/Resolving]
